FAERS Safety Report 21816089 (Version 2)
Quarter: 2023Q2

REPORT INFORMATION
  Report Type: Report from Study
  Country: US (occurrence: US)
  Receive Date: 20230104
  Receipt Date: 20230414
  Transmission Date: 20230721
  Serious: No
  Sender: FDA-Public Use
  Company Number: US-ABBVIE-4216438

PATIENT
  Age: 64 Year
  Sex: Female
  Weight: 66.678 kg

DRUGS (1)
  1. RINVOQ [Suspect]
     Active Substance: UPADACITINIB
     Indication: Product used for unknown indication
     Route: 048

REACTIONS (5)
  - Laboratory test abnormal [Recovering/Resolving]
  - White blood cell count increased [Recovering/Resolving]
  - Red blood cell count decreased [Recovering/Resolving]
  - Blood triglycerides increased [Recovering/Resolving]
  - Liver function test increased [Recovering/Resolving]

NARRATIVE: CASE EVENT DATE: 20221110
